FAERS Safety Report 14423675 (Version 1)
Quarter: 2018Q1

REPORT INFORMATION
  Report Type: Spontaneous
  Country: US (occurrence: US)
  Receive Date: 20180123
  Receipt Date: 20180123
  Transmission Date: 20180509
  Serious: No
  Sender: FDA-Public Use
  Company Number: US-TEVA-782945USA

PATIENT
  Sex: Female

DRUGS (1)
  1. MIRTAZAPINE. [Suspect]
     Active Substance: MIRTAZAPINE
     Indication: SLEEP DISORDER
     Route: 048
     Dates: start: 2017

REACTIONS (2)
  - Product taste abnormal [Unknown]
  - Drug effect delayed [Unknown]

NARRATIVE: CASE EVENT DATE: 2017
